FAERS Safety Report 5602320-1 (Version None)
Quarter: 2008Q1

REPORT INFORMATION
  Report Type: 
  Country: None (occurrence: None)
  Receive Date: 20080125
  Receipt Date: 20080114
  Transmission Date: 20080703
  Serious: Yes (Hospitalization, Other)
  Sender: FDA-Public Use
  Company Number: US-AMGEN-QUU254215

PATIENT
  Sex: Female
  Weight: 56.8 kg

DRUGS (2)
  1. ENBREL [Suspect]
     Indication: RHEUMATOID ARTHRITIS
     Route: 058
     Dates: start: 20011219
  2. METHOTREXATE [Concomitant]
     Route: 048

REACTIONS (7)
  - ANTINUCLEAR ANTIBODY POSITIVE [None]
  - ARTHROPATHY [None]
  - CHEST PAIN [None]
  - DRUG INEFFECTIVE [None]
  - INJECTION SITE INDURATION [None]
  - INJECTION SITE REACTION [None]
  - JOINT DESTRUCTION [None]
